FAERS Safety Report 10228813 (Version 1)
Quarter: 2014Q2

REPORT INFORMATION
  Report Type: Spontaneous
  Country: JP (occurrence: JP)
  Receive Date: 20140610
  Receipt Date: 20140610
  Transmission Date: 20141212
  Serious: Yes (Death)
  Sender: FDA-Public Use
  Company Number: JP-BRISTOL-MYERS SQUIBB COMPANY-20978722

PATIENT
  Age: 34 Year
  Sex: Female
  Weight: 40 kg

DRUGS (3)
  1. ABILIFY TABS [Suspect]
     Route: 048
  2. VEGETAMIN [Concomitant]
  3. HALCION [Concomitant]

REACTIONS (1)
  - Death [Fatal]
